FAERS Safety Report 11781827 (Version 2)
Quarter: 2015Q4

REPORT INFORMATION
  Report Type: Report from Study
  Country: CA (occurrence: CA)
  Receive Date: 20151126
  Receipt Date: 20151203
  Transmission Date: 20160305
  Serious: Yes (Hospitalization)
  Sender: FDA-Public Use
  Company Number: CA-TAKEDA-2015TUS016953

PATIENT
  Age: 39 Year
  Sex: Male

DRUGS (4)
  1. VEDOLIZUMAB [Suspect]
     Active Substance: VEDOLIZUMAB
     Indication: COLITIS ULCERATIVE
     Dosage: 300 MG, UNK
     Route: 042
     Dates: start: 20150710
  2. MEZAVANT [Concomitant]
     Active Substance: MESALAMINE
     Dosage: 2 G, BID
     Dates: start: 2012
  3. PENTASA [Concomitant]
     Active Substance: MESALAMINE
     Dosage: 1 G, UNK
  4. IMURAN [Concomitant]
     Active Substance: AZATHIOPRINE
     Dosage: 100 MG, QD
     Dates: start: 2010

REACTIONS (1)
  - Vertigo positional [Recovering/Resolving]
